FAERS Safety Report 9571007 (Version 2)
Quarter: 2013Q4

REPORT INFORMATION
  Report Type: Spontaneous
  Country: BR (occurrence: BR)
  Receive Date: 20131001
  Receipt Date: 20131107
  Transmission Date: 20140711
  Serious: Yes (Death, Hospitalization)
  Sender: FDA-Public Use
  Company Number: BR-SHIRE-ALL1-2013-06611

PATIENT
  Age: 11 Year
  Sex: Male
  Weight: 24 kg

DRUGS (1)
  1. ELAPRASE [Suspect]
     Indication: MUCOPOLYSACCHARIDOSIS II
     Dosage: 12 MG (TWO VIALS, 0.5MG/KG), 1X/WEEK
     Route: 041
     Dates: start: 20110810, end: 20130908

REACTIONS (3)
  - Lung infection [Unknown]
  - Cardio-respiratory arrest [Fatal]
  - Adenoidal disorder [Recovering/Resolving]
